FAERS Safety Report 6387996-6 (Version None)
Quarter: 2009Q4

REPORT INFORMATION
  Report Type: 
  Country: None (occurrence: None)
  Receive Date: 20091005
  Receipt Date: 20090922
  Transmission Date: 20100525
  Serious: Yes (Hospitalization)
  Sender: FDA-Public Use
  Company Number: US-ALEXION-A200900751

PATIENT
  Sex: Male

DRUGS (5)
  1. SOLIRIS [Suspect]
     Indication: PAROXYSMAL NOCTURNAL HAEMOGLOBINURIA
     Dosage: 600 MG, EVERY WEEK
     Route: 042
     Dates: start: 20090903
  2. OXYCONTIN [Concomitant]
     Indication: PAIN
     Dosage: UNK, PRN
     Route: 048
  3. VICODIN [Concomitant]
     Indication: PAIN
     Dosage: UNK, PRN
     Route: 048
  4. LASIX [Concomitant]
     Dosage: UNK
     Route: 048
  5. ALDACTONE [Concomitant]
     Dosage: UNK
     Route: 048

REACTIONS (1)
  - PNEUMONIA [None]
